FAERS Safety Report 16041065 (Version 1)
Quarter: 2019Q1

REPORT INFORMATION
  Report Type: Spontaneous
  Country: US (occurrence: US)
  Receive Date: 20190306
  Receipt Date: 20190306
  Transmission Date: 20190418
  Serious: Yes (Other)
  Sender: FDA-Public Use
  Company Number: US-AKORN PHARMACEUTICALS-2018AKN01742

PATIENT
  Age: 23 Year
  Sex: Male
  Weight: 70.3 kg

DRUGS (6)
  1. MYORISAN [Suspect]
     Active Substance: ISOTRETINOIN
     Indication: ACNE CYSTIC
     Dosage: 40 MG, 1X/DAY
     Route: 048
     Dates: start: 20180423, end: 20180627
  2. MYORISAN [Suspect]
     Active Substance: ISOTRETINOIN
     Indication: ACNE CYSTIC
     Dosage: 30 MG, 1X/DAY
     Route: 048
     Dates: start: 20180529, end: 20180627
  3. ISOTRETINOIN (AMNEAL) [Suspect]
     Active Substance: ISOTRETINOIN
     Indication: ACNE CYSTIC
     Dosage: 30 MG, 1X/DAY
     Route: 048
     Dates: start: 20180624, end: 20180627
  4. MYORISAN [Suspect]
     Active Substance: ISOTRETINOIN
     Dosage: 40 MG, 1X/DAY
     Route: 048
     Dates: start: 20180814, end: 20180904
  5. MYORISAN [Suspect]
     Active Substance: ISOTRETINOIN
     Dosage: 30 MG, 1X/DAY
     Route: 048
     Dates: start: 20181017, end: 20181030
  6. ISOTRETINOIN (AMNEAL) [Suspect]
     Active Substance: ISOTRETINOIN
     Dosage: 30 MG, 1X/DAY
     Route: 048
     Dates: start: 20180914, end: 20181030

REACTIONS (10)
  - Alanine aminotransferase increased [Recovered/Resolved]
  - Dry skin [Unknown]
  - Low density lipoprotein increased [Recovered/Resolved]
  - Blood cholesterol increased [Recovered/Resolved]
  - Off label use [Recovered/Resolved]
  - Blood creatine phosphokinase increased [Recovered/Resolved]
  - Aspartate aminotransferase increased [Recovered/Resolved]
  - Lip dry [Unknown]
  - High density lipoprotein decreased [Recovered/Resolved]
  - Arthralgia [Unknown]

NARRATIVE: CASE EVENT DATE: 2018
